FAERS Safety Report 8061625-8 (Version None)
Quarter: 2012Q1

REPORT INFORMATION
  Report Type: 
  Country: None (occurrence: None)
  Receive Date: 20120123
  Receipt Date: 20120116
  Transmission Date: 20120608
  Serious: Yes (Hospitalization)
  Sender: FDA-Public Use
  Company Number: PHHO2011TW021680

PATIENT
  Sex: Male
  Weight: 59.1 kg

DRUGS (8)
  1. BLINDED NO TREATMENT RECEIVED [Suspect]
     Indication: CARDIAC FAILURE
     Dosage: DOUBLE BLINDED
     Route: 048
     Dates: start: 20100106, end: 20110611
  2. SPIRONOLACTONE [Concomitant]
     Indication: CARDIAC FAILURE CONGESTIVE
     Dosage: 25 MG, QD
     Route: 048
     Dates: start: 20040806, end: 20111227
  3. BLINDED ALISKIREN [Suspect]
     Indication: CARDIAC FAILURE
     Dosage: DOUBLE BLINDED
     Route: 048
     Dates: start: 20100106, end: 20110611
  4. BLINDED NO TREATMENT RECEIVED [Suspect]
     Dosage: DOUBLE BLINDED
     Route: 048
     Dates: start: 20111123, end: 20111227
  5. ENALAPRIL MALEATE [Suspect]
     Indication: CARDIAC FAILURE
     Dosage: DOUBLE BLINDED
     Route: 048
     Dates: start: 20100106, end: 20110611
  6. DIGOXIN [Suspect]
     Indication: CARDIAC FAILURE CONGESTIVE
     Dosage: 0.25 MG, QD
     Route: 048
     Dates: start: 20110811, end: 20111227
  7. BLINDED ALISKIREN [Suspect]
     Dosage: DOUBLE BLINDED
     Route: 048
     Dates: start: 20111123, end: 20111227
  8. ENALAPRIL MALEATE [Suspect]
     Dosage: DOUBLE BLINDED
     Route: 048
     Dates: start: 20111123, end: 20111227

REACTIONS (4)
  - FLUID OVERLOAD [None]
  - CARDIAC FAILURE ACUTE [None]
  - TOXICITY TO VARIOUS AGENTS [None]
  - HYPOTENSION [None]
